FAERS Safety Report 24746921 (Version 1)
Quarter: 2024Q4

REPORT INFORMATION
  Report Type: Spontaneous
  Country: US (occurrence: US)
  Receive Date: 20241218
  Receipt Date: 20241218
  Transmission Date: 20250115
  Serious: No
  Sender: BIOVITRUM
  Company Number: US-BIOVITRUM-2024-US-016029

PATIENT
  Age: 48 Year
  Sex: Male

DRUGS (1)
  1. KINERET [Suspect]
     Active Substance: ANAKINRA
     Indication: Ankylosing spondylitis
     Dosage: BID
     Route: 058
     Dates: start: 20190418

REACTIONS (4)
  - Illness [Unknown]
  - Aphonia [Unknown]
  - Oropharyngeal discomfort [Unknown]
  - Product dose omission issue [Unknown]
